FAERS Safety Report 7708202-3 (Version None)
Quarter: 2011Q3

REPORT INFORMATION
  Report Type: 
  Country: None (occurrence: None)
  Receive Date: 20110825
  Receipt Date: 20110815
  Transmission Date: 20111222
  Serious: No
  Sender: FDA-Public Use
  Company Number: US-BIOGENIDEC-2011BI031273

PATIENT
  Sex: Male

DRUGS (1)
  1. TYSABRI [Suspect]
     Indication: MULTIPLE SCLEROSIS
     Route: 042
     Dates: start: 20110803

REACTIONS (5)
  - HYPOAESTHESIA [None]
  - FATIGUE [None]
  - MUSCULAR WEAKNESS [None]
  - MIDDLE INSOMNIA [None]
  - BREATHING-RELATED SLEEP DISORDER [None]
